FAERS Safety Report 9687863 (Version 2)
Quarter: 2013Q4

REPORT INFORMATION
  Report Type: Spontaneous
  Country: GB (occurrence: None)
  Receive Date: 20131112
  Receipt Date: 20131125
  Transmission Date: 20140711
  Serious: Yes (Disabling, Other)
  Sender: FDA-Public Use
  Company Number: AUR-APL-2013-09322

PATIENT
  Age: 75 Year
  Sex: Female
  Weight: 40 kg

DRUGS (6)
  1. ALENDRONIC ACID [Suspect]
     Indication: OSTEOPOROSIS
     Route: 048
     Dates: start: 20091119, end: 20120518
  2. FELODIPINE [Concomitant]
  3. PRAMIPEXOLE [Concomitant]
  4. SALBUTAMOL [Concomitant]
  5. SIMVASTATIN [Concomitant]
  6. TIOTROPIUM [Concomitant]

REACTIONS (6)
  - Osteonecrosis of jaw [None]
  - Pain [None]
  - Aphagia [None]
  - Osteonecrosis [None]
  - Malnutrition [None]
  - Weight decreased [None]
